FAERS Safety Report 21540189 (Version 2)
Quarter: 2022Q4

REPORT INFORMATION
  Report Type: Spontaneous
  Country: US (occurrence: US)
  Receive Date: 20221102
  Receipt Date: 20221117
  Transmission Date: 20230113
  Serious: No
  Sender: FDA-Public Use
  Company Number: US-AIMMUNE THERAPEUTICS, INC.-2022AIMT02672

PATIENT

DRUGS (4)
  1. PALFORZIA [Suspect]
     Active Substance: PEANUT
     Indication: Food allergy
     Dosage: IDE (0.5-6MG), ONCE
     Route: 048
     Dates: start: 20220831, end: 20220831
  2. PALFORZIA [Suspect]
     Active Substance: PEANUT
     Dosage: 12MG, 1X/DAY
     Route: 048
     Dates: start: 20220929
  3. PALFORZIA [Suspect]
     Active Substance: PEANUT
     Dosage: 12MG, ONCE, LAST DOSE PRIOR EVENT
     Route: 048
     Dates: start: 202210, end: 202210
  4. ALBUTEROL [Concomitant]
     Active Substance: ALBUTEROL
     Indication: Asthma

REACTIONS (3)
  - Illness [Recovered/Resolved]
  - Rhinorrhoea [Recovered/Resolved]
  - Cough [Recovered/Resolved]

NARRATIVE: CASE EVENT DATE: 20221001
